APPROVED DRUG PRODUCT: CIMETIDINE
Active Ingredient: CIMETIDINE
Strength: 800MG
Dosage Form/Route: TABLET;ORAL
Application: A074339 | Product #001
Applicant: NOVITIUM PHARMA LLC
Approved: Jun 23, 1995 | RLD: No | RS: No | Type: DISCN